FAERS Safety Report 11443703 (Version 1)
Quarter: 2015Q3

REPORT INFORMATION
  Report Type: Spontaneous
  Country: US (occurrence: US)
  Receive Date: 20150901
  Receipt Date: 20150901
  Transmission Date: 20151125
  Serious: Yes (Other)
  Sender: FDA-Public Use
  Company Number: US-SPECTRUM PHARMACEUTICALS, INC.-14-Z-US-00085

PATIENT
  Sex: Female

DRUGS (1)
  1. ZEVALIN [Suspect]
     Active Substance: IBRITUMOMAB TIUXETAN
     Indication: B-CELL LYMPHOMA
     Dosage: 3.2 MG/M2, SINGLE
     Route: 042
     Dates: start: 201403, end: 201403

REACTIONS (1)
  - Pancytopenia [Not Recovered/Not Resolved]
